FAERS Safety Report 18522806 (Version 2)
Quarter: 2025Q2

REPORT INFORMATION
  Report Type: Spontaneous
  Country: JM (occurrence: JM)
  Receive Date: 20201119
  Receipt Date: 20250417
  Transmission Date: 20250716
  Serious: Yes (Hospitalization, Other)
  Sender: NOVARTIS
  Company Number: JM-NOVARTISPH-NVSC2020JM304293

PATIENT
  Sex: Male

DRUGS (2)
  1. TASIGNA [Suspect]
     Active Substance: NILOTINIB
     Indication: Chronic myeloid leukaemia
     Dosage: 400 MG, BID
     Route: 065
  2. TASIGNA [Suspect]
     Active Substance: NILOTINIB
     Dosage: 2 DF, QD
     Route: 065

REACTIONS (8)
  - Cerebrovascular accident [Unknown]
  - Blood calcium increased [Unknown]
  - Liver injury [Unknown]
  - Drug intolerance [Unknown]
  - Illness [Unknown]
  - Sleep disorder [Unknown]
  - Decreased appetite [Unknown]
  - Asthenia [Unknown]
